FAERS Safety Report 6633651-4 (Version None)
Quarter: 2010Q1

REPORT INFORMATION
  Report Type: 
  Country: None (occurrence: None)
  Receive Date: 20100312
  Receipt Date: 20100308
  Transmission Date: 20100710
  Serious: Yes (Hospitalization, Other)
  Sender: FDA-Public Use
  Company Number: US-AMGEN-ICO277184

PATIENT
  Sex: Female

DRUGS (21)
  1. DARBEPOETIN ALFA [Suspect]
     Indication: RENAL FAILURE CHRONIC
     Route: 058
     Dates: start: 20070612
  2. METOPROLOL TARTRATE [Concomitant]
     Route: 048
     Dates: start: 20071117
  3. CLONIDINE [Concomitant]
     Route: 048
     Dates: start: 20080423
  4. HYDRALAZINE HCL [Concomitant]
     Route: 048
     Dates: start: 20070905
  5. LANTUS [Concomitant]
  6. ALBUTEROL [Concomitant]
     Route: 055
  7. ASPIRIN [Concomitant]
     Route: 048
     Dates: start: 20061231
  8. DOCUSATE SODIUM [Concomitant]
     Route: 048
     Dates: start: 20061231
  9. FERROUS SULFATE TAB [Concomitant]
     Route: 048
     Dates: start: 20080321
  10. GLIPIZIDE [Concomitant]
     Route: 048
     Dates: start: 20070606
  11. LORATADINE [Concomitant]
     Route: 048
     Dates: start: 20071011
  12. LYRICA [Concomitant]
     Route: 048
     Dates: start: 20070127
  13. METHADONE HYDROCHLORIDE [Concomitant]
     Route: 048
     Dates: start: 20070918
  14. PLAVIX [Concomitant]
     Route: 048
     Dates: start: 20061231
  15. RANITIDINE [Concomitant]
     Route: 048
     Dates: start: 20071011
  16. SERTRALINE HCL [Concomitant]
     Route: 048
     Dates: start: 20080226
  17. SIMVASTATIN [Concomitant]
     Route: 048
     Dates: start: 20071011
  18. ZOLOFT [Concomitant]
     Route: 048
     Dates: start: 20070910
  19. SUCRALFATE [Concomitant]
     Route: 048
     Dates: start: 20071011
  20. NEXIUM [Concomitant]
     Route: 048
  21. NORVASC [Concomitant]
     Route: 048

REACTIONS (2)
  - HYPERTENSIVE EMERGENCY [None]
  - RENAL FAILURE CHRONIC [None]
